FAERS Safety Report 23115417 (Version 1)
Quarter: 2023Q4

REPORT INFORMATION
  Report Type: Spontaneous
  Country: US (occurrence: None)
  Receive Date: 20231026
  Receipt Date: 20231026
  Transmission Date: 20240110
  Serious: Yes (Life-Threatening, Hospitalization)
  Sender: FDA-Public Use
  Company Number: None

PATIENT
  Age: 79 Year
  Sex: Male

DRUGS (3)
  1. ASPIRIN [Suspect]
     Active Substance: ASPIRIN
  2. CLOPIDOGREL [Suspect]
     Active Substance: CLOPIDOGREL BISULFATE
  3. NAPROXEN [Suspect]
     Active Substance: NAPROXEN

REACTIONS (3)
  - Duodenal ulcer [None]
  - Rectal haemorrhage [None]
  - Hypotension [None]

NARRATIVE: CASE EVENT DATE: 20230629
